FAERS Safety Report 23691534 (Version 1)
Quarter: 2024Q2

REPORT INFORMATION
  Report Type: Spontaneous
  Country: RU (occurrence: RU)
  Receive Date: 20240401
  Receipt Date: 20240401
  Transmission Date: 20240716
  Serious: Yes (Other)
  Sender: FDA-Public Use
  Company Number: RU-BAYER-2023A161962

PATIENT
  Age: 45 Year
  Sex: Female
  Weight: 56.9 kg

DRUGS (1)
  1. DIENOGEST\ESTRADIOL VALERATE [Suspect]
     Active Substance: DIENOGEST\ESTRADIOL VALERATE
     Indication: Contraception
     Dosage: UNK
     Route: 048
     Dates: start: 201711, end: 20231024

REACTIONS (5)
  - Uterine leiomyoma [None]
  - Salpingitis [None]
  - Uterine enlargement [None]
  - Endometrial atrophy [None]
  - Blood pressure increased [None]
